FAERS Safety Report 16616912 (Version 1)
Quarter: 2019Q3

REPORT INFORMATION
  Report Type: Spontaneous
  Country: FR (occurrence: FR)
  Receive Date: 20190723
  Receipt Date: 20190723
  Transmission Date: 20191004
  Serious: Yes (Hospitalization)
  Sender: FDA-Public Use
  Company Number: FR-ZYDUS-038810

PATIENT
  Age: 53 Year
  Sex: Female

DRUGS (4)
  1. PREDNISOLONE. [Suspect]
     Active Substance: PREDNISOLONE
     Indication: SUICIDE ATTEMPT
     Dosage: (1)IN TOTAL
     Route: 048
     Dates: start: 20170729, end: 20170729
  2. HAVLANE [Suspect]
     Active Substance: LOPRAZOLAM
     Indication: SUICIDE ATTEMPT
     Dosage: (1)IN TOTAL
     Route: 048
     Dates: start: 20170729, end: 20170729
  3. PAROXETINE. [Suspect]
     Active Substance: PAROXETINE
     Indication: SUICIDE ATTEMPT
     Dosage: (1)IN TOTAL
     Route: 048
     Dates: start: 20170729, end: 20170729
  4. ALPRAZOLAM. [Suspect]
     Active Substance: ALPRAZOLAM
     Indication: SUICIDE ATTEMPT
     Dosage: (1)IN TOTAL
     Route: 048
     Dates: start: 20170729, end: 20170729

REACTIONS (2)
  - Toxicity to various agents [Recovered/Resolved]
  - Coma [Recovered/Resolved]

NARRATIVE: CASE EVENT DATE: 20170729
